FAERS Safety Report 8348124-0 (Version None)
Quarter: 2012Q2

REPORT INFORMATION
  Report Type: 
  Country: None (occurrence: None)
  Receive Date: 20120509
  Receipt Date: 20120503
  Transmission Date: 20120825
  Serious: Yes (Hospitalization, Other)
  Sender: FDA-Public Use
  Company Number: PHHY2012EC013568

PATIENT
  Sex: Male

DRUGS (2)
  1. DIOVAN HCT [Suspect]
     Indication: HYPERTENSION
     Dosage: ONE TABLET (160/12.5 MG) DAILY.
     Route: 048
     Dates: start: 20070101
  2. ATORVASTATIN CALCIUM [Concomitant]
     Dosage: 1 DF, 80 MG, DAILY

REACTIONS (8)
  - FLUID RETENTION [None]
  - COUGH [None]
  - DYSPNOEA [None]
  - INFLUENZA [None]
  - CARDIAC DISORDER [None]
  - ACUTE PULMONARY OEDEMA [None]
  - OEDEMA PERIPHERAL [None]
  - HYPERGLYCAEMIA [None]
